FAERS Safety Report 6963789-3 (Version None)
Quarter: 2010Q3

REPORT INFORMATION
  Report Type: 
  Country: None (occurrence: None)
  Receive Date: 20100902
  Receipt Date: 20100826
  Transmission Date: 20110219
  Serious: Yes (Hospitalization)
  Sender: FDA-Public Use
  Company Number: IT-ALLERGAN-1011107US

PATIENT
  Age: 15 Month
  Sex: Female

DRUGS (1)
  1. ATROPINA LUX 0.5% [Suspect]
     Indication: MYDRIASIS
     Dosage: 2 GTT, UNK
     Route: 047
     Dates: start: 20100721, end: 20100721

REACTIONS (1)
  - URTICARIA [None]
